FAERS Safety Report 6188066-2 (Version None)
Quarter: 2009Q2

REPORT INFORMATION
  Report Type: 
  Country: None (occurrence: None)
  Receive Date: 20090513
  Receipt Date: 20090504
  Transmission Date: 20091009
  Serious: Yes (Other)
  Sender: FDA-Public Use
  Company Number: PHHY2009BR17294

PATIENT
  Sex: Female
  Weight: 82 kg

DRUGS (1)
  1. DIOVAN [Suspect]
     Indication: HYPERTENSION
     Dosage: 2 TABLETS A DAY, MORNING AND NIGHT
     Route: 048
     Dates: start: 20081101

REACTIONS (12)
  - ASTHENIA [None]
  - COUGH [None]
  - CYSTITIS [None]
  - DIZZINESS [None]
  - DYSURIA [None]
  - EATING DISORDER [None]
  - FEELING ABNORMAL [None]
  - INFLUENZA [None]
  - NASAL CONGESTION [None]
  - PAIN [None]
  - PYREXIA [None]
  - THROAT IRRITATION [None]
